FAERS Safety Report 5381830-9 (Version None)
Quarter: 2007Q3

REPORT INFORMATION
  Report Type: 
  Country: None (occurrence: None)
  Receive Date: 20070709
  Receipt Date: 20070627
  Transmission Date: 20080115
  Serious: Yes (Hospitalization)
  Sender: FDA-Public Use
  Company Number: DE-AMGEN-US198763

PATIENT
  Age: 41 Year
  Sex: Female

DRUGS (4)
  1. ENBREL [Suspect]
     Indication: PSORIATIC ARTHROPATHY
     Dosage: 50 MG WEEKLY
     Route: 058
     Dates: start: 20051001
  2. METHOTREXATE SODIUM [Suspect]
     Indication: PSORIATIC ARTHROPATHY
     Route: 051
     Dates: start: 20050701, end: 20061103
  3. PREDNISOLONE [Concomitant]
     Indication: PSORIATIC ARTHROPATHY
     Route: 048
  4. ARCOXIA [Concomitant]
     Indication: PSORIATIC ARTHROPATHY
     Dosage: 90 MG PER DAY
     Route: 048

REACTIONS (13)
  - ASTHMA [None]
  - COSTOCHONDRITIS [None]
  - DRUG INEFFECTIVE [None]
  - DRY EYE [None]
  - DYSPNOEA [None]
  - INFECTION [None]
  - LUNG DISORDER [None]
  - MUSCULOSKELETAL CHEST PAIN [None]
  - NASAL DRYNESS [None]
  - PSORIATIC ARTHROPATHY [None]
  - RASH PRURITIC [None]
  - RHEUMATOID NODULE [None]
  - SWELLING [None]
